FAERS Safety Report 10067965 (Version 3)
Quarter: 2014Q2

REPORT INFORMATION
  Report Type: Spontaneous
  Country: US (occurrence: ES)
  Receive Date: 20140409
  Receipt Date: 20140531
  Transmission Date: 20141212
  Serious: Yes (Other)
  Sender: FDA-Public Use
  Company Number: 2014SP001597

PATIENT
  Age: 61 Year
  Sex: Male

DRUGS (9)
  1. METHOTREXATE [Suspect]
     Indication: RHEUMATOID ARTHRITIS
     Route: 065
  2. ETANERCEPT [Suspect]
     Indication: RHEUMATOID ARTHRITIS
     Route: 065
     Dates: end: 201405
  3. INDOMETACIN [Concomitant]
     Indication: RHEUMATOID ARTHRITIS
  4. ATENOLOL [Concomitant]
     Indication: ACUTE MYOCARDIAL INFARCTION
  5. ACETYLSALICYLIC ACID [Concomitant]
     Indication: ACUTE MYOCARDIAL INFARCTION
  6. ATORVASTATIN [Concomitant]
     Indication: ACUTE MYOCARDIAL INFARCTION
  7. IRBESARTAN [Concomitant]
     Indication: HYPERTENSION
  8. PREDNISONE [Concomitant]
     Indication: RHEUMATOID ARTHRITIS
  9. PARACETAMOL [Concomitant]
     Indication: RHEUMATOID ARTHRITIS

REACTIONS (4)
  - Rheumatoid arthritis [Unknown]
  - Pain in extremity [Unknown]
  - Rheumatoid factor decreased [Unknown]
  - Blood uric acid increased [Unknown]
